FAERS Safety Report 4502321-0 (Version None)
Quarter: 2004Q4

REPORT INFORMATION
  Report Type: 
  Country: None (occurrence: None)
  Receive Date: 20041116
  Receipt Date: 20041103
  Transmission Date: 20050328
  Serious: Yes (Hospitalization)
  Sender: FDA-Public Use
  Company Number: GB-GLAXOSMITHKLINE-B0350436A

PATIENT
  Age: 67 Year
  Sex: Female

DRUGS (5)
  1. PAROXETINE [Suspect]
     Indication: DEPRESSION
     Dosage: 10MG PER DAY
     Route: 048
  2. VERAPAMIL [Concomitant]
     Dosage: 40MG PER DAY
     Route: 048
  3. SIMVASTATIN [Concomitant]
     Dosage: 20MG PER DAY
     Route: 048
  4. BECLOMETHASONE DIPROPIONATE [Concomitant]
     Dosage: 200MCG PER DAY
     Route: 065
  5. DIHYDROCODEINE [Concomitant]
     Dosage: 30MG PER DAY
     Route: 048

REACTIONS (3)
  - GASTROINTESTINAL HAEMORRHAGE [None]
  - HAEMATEMESIS [None]
  - MALLORY-WEISS SYNDROME [None]
